FAERS Safety Report 16755338 (Version 1)
Quarter: 2019Q4

REPORT INFORMATION
  Report Type: Spontaneous
  Country: US (occurrence: US)
  Receive Date: 20190828
  Receipt Date: 20190828
  Transmission Date: 20200122
  Serious: No
  Sender: FDA-Public Use
  Company Number: None

PATIENT
  Age: 47 Year
  Sex: Female
  Weight: 70.2 kg

DRUGS (7)
  1. SUPPOSITORIES [Concomitant]
  2. FIBER SUPPLEMENTS [Concomitant]
  3. LAXATIVES [Concomitant]
     Active Substance: UNSPECIFIED INGREDIENT
  4. AJOVY [Suspect]
     Active Substance: FREMANEZUMAB-VFRM
     Indication: MIGRAINE PROPHYLAXIS
     Dosage: ?          OTHER FREQUENCY:ONCE A MONTH INJEC;?           IS THERAPY STILL ON-GOING: Y
     Route: 058
     Dates: start: 20190422, end: 20190622
  5. IBUPROFEN. [Concomitant]
     Active Substance: IBUPROFEN
  6. SPRINTEC ORAL CONTRACEPTIVE [Concomitant]
  7. STOOL SOFTENER (DOCUSATE) [Concomitant]
     Active Substance: DOCUSATE

REACTIONS (4)
  - Haemorrhoids [None]
  - Alopecia [None]
  - Constipation [None]
  - Polymenorrhoea [None]

NARRATIVE: CASE EVENT DATE: 20190807
